FAERS Safety Report 6962006-8 (Version None)
Quarter: 2010Q3

REPORT INFORMATION
  Report Type: 
  Country: None (occurrence: None)
  Receive Date: 20100902
  Receipt Date: 20100827
  Transmission Date: 20110219
  Serious: Yes (Other)
  Sender: FDA-Public Use
  Company Number: US-SHIRE-SPV1-2010-01492

PATIENT
  Age: 58 Year
  Sex: Female
  Weight: 113.38 kg

DRUGS (3)
  1. VYVANSE [Suspect]
     Indication: ATTENTION DEFICIT/HYPERACTIVITY DISORDER
     Dosage: UNK, 1X/DAY:QD
     Route: 048
     Dates: start: 20091201, end: 20091201
  2. PROZAC [Concomitant]
     Indication: DEPRESSION
     Dosage: 40 MG, 1X/DAY:QD
     Route: 048
     Dates: start: 19960101
  3. XANAX [Concomitant]
     Indication: ANXIETY
     Dosage: .25 MG, AS REQ'D
     Route: 048
     Dates: start: 19960101

REACTIONS (3)
  - CONDITION AGGRAVATED [None]
  - DEPRESSION [None]
  - SUICIDAL IDEATION [None]
